FAERS Safety Report 4889058-3 (Version None)
Quarter: 2005Q4

REPORT INFORMATION
  Report Type: 
  Country: None (occurrence: None)
  Receive Date: 20051215
  Receipt Date: 20050912
  Transmission Date: 20060501
  Serious: Yes (Hospitalization)
  Sender: FDA-Public Use
  Company Number: 2005127413

PATIENT
  Age: 79 Year
  Sex: Male
  Weight: 48.9885 kg

DRUGS (3)
  1. BEXTRA [Suspect]
     Indication: OSTEOARTHRITIS
     Dosage: 20 MG (10 MG,2 IN 1 D),ORAL
     Route: 048
     Dates: end: 20040101
  2. ACETYLSALICYLIC ACID SRT [Concomitant]
  3. COZAAR [Concomitant]

REACTIONS (4)
  - CHEST DISCOMFORT [None]
  - DYSPNOEA [None]
  - MYOCARDIAL INFARCTION [None]
  - PARAESTHESIA [None]
